FAERS Safety Report 7328280-3 (Version None)
Quarter: 2011Q1

REPORT INFORMATION
  Report Type: 
  Country: None (occurrence: None)
  Receive Date: 20110223
  Receipt Date: 20110215
  Transmission Date: 20110831
  Serious: Yes (Hospitalization)
  Sender: FDA-Public Use
  Company Number: 2011S1000201

PATIENT
  Age: 73 Year
  Sex: Male

DRUGS (5)
  1. ASPIRIN [Concomitant]
  2. LIVALO [Suspect]
     Indication: HYPERCHOLESTEROLAEMIA
     Dosage: 2 MG;1X;PO
     Route: 048
     Dates: start: 20101109
  3. PLAVIX [Concomitant]
  4. TEVETEN /01347301/ [Concomitant]
  5. COZAAR [Concomitant]

REACTIONS (2)
  - CHEST PAIN [None]
  - IN-STENT CORONARY ARTERY RESTENOSIS [None]
